FAERS Safety Report 18610498 (Version 1)
Quarter: 2020Q4

REPORT INFORMATION
  Report Type: Spontaneous
  Country: US (occurrence: US)
  Receive Date: 20201214
  Receipt Date: 20201214
  Transmission Date: 20210114
  Serious: Yes (Life-Threatening)
  Sender: FDA-Public Use
  Company Number: US-PFIZER INC-2020483998

PATIENT
  Age: 3 Month
  Sex: Male
  Weight: 4.7 kg

DRUGS (3)
  1. SUCCINYLCHOLINE CHLORIDE. [Suspect]
     Active Substance: SUCCINYLCHOLINE CHLORIDE
     Indication: ENDOTRACHEAL INTUBATION
     Dosage: 10 MG
     Route: 042
  2. ATROPINE. [Concomitant]
     Active Substance: ATROPINE
     Indication: ANAESTHESIA
     Dosage: 0.1  MG
     Route: 042
  3. HALOTHANE. [Concomitant]
     Active Substance: HALOTHANE
     Indication: ANAESTHESIA
     Dosage: 2%

REACTIONS (4)
  - Muscle contracture [Recovered/Resolved]
  - Cardiac arrest [Recovered/Resolved]
  - Muscle rigidity [Recovered/Resolved]
  - Muscle injury [Recovered/Resolved]
